FAERS Safety Report 18694408 (Version 1)
Quarter: 2020Q4

REPORT INFORMATION
  Report Type: Spontaneous
  Country: US (occurrence: US)
  Receive Date: 20201230
  Receipt Date: 20201230
  Transmission Date: 20210114
  Serious: Yes (Hospitalization, Other)
  Sender: FDA-Public Use
  Company Number: None

PATIENT
  Age: 62 Year
  Sex: Female
  Weight: 61.69 kg

DRUGS (11)
  1. LIDODERM [Concomitant]
     Active Substance: LIDOCAINE
  2. TOLTERODINE LA [Concomitant]
  3. ZOLPIDEM [Concomitant]
     Active Substance: ZOLPIDEM TARTRATE
  4. TYLENOL [Concomitant]
     Active Substance: ACETAMINOPHEN
  5. NAPROXEN SODIUM. [Concomitant]
     Active Substance: NAPROXEN SODIUM
  6. BACTRIM DS [Concomitant]
     Active Substance: SULFAMETHOXAZOLE\TRIMETHOPRIM
  7. MAGNESIUM [Concomitant]
     Active Substance: MAGNESIUM
  8. VIT. D [Concomitant]
     Active Substance: VITAMIN D NOS
  9. SUMATRIPTAN 50MG TABLETS [Suspect]
     Active Substance: SUMATRIPTAN
     Indication: MIGRAINE
     Dosage: ?          QUANTITY:1 PILL;?
     Route: 048
     Dates: end: 20201118
  10. AIMOVIG [Concomitant]
     Active Substance: ERENUMAB-AOOE
  11. ESTRACE [Concomitant]
     Active Substance: ESTRADIOL

REACTIONS (1)
  - Myocardial infarction [None]

NARRATIVE: CASE EVENT DATE: 20201118
